FAERS Safety Report 7417319-2 (Version None)
Quarter: 2011Q2

REPORT INFORMATION
  Report Type: 
  Country: None (occurrence: None)
  Receive Date: 20110415
  Receipt Date: 20110411
  Transmission Date: 20111010
  Serious: Yes (Other)
  Sender: FDA-Public Use
  Company Number: US-BAYER-2011-031829

PATIENT
  Sex: Female

DRUGS (3)
  1. YAZ [Suspect]
     Dosage: UNK
     Dates: start: 20010801, end: 20091101
  2. YASMIN [Suspect]
     Dosage: UNK
     Dates: start: 20010801, end: 20091101
  3. OCELLA [Suspect]
     Dosage: UNK
     Dates: start: 20010801, end: 20091101

REACTIONS (3)
  - INJURY [None]
  - THROMBOSIS [None]
  - PAIN [None]
